FAERS Safety Report 12608789 (Version 1)
Quarter: 2016Q3

REPORT INFORMATION
  Report Type: Spontaneous
  Country: US (occurrence: US)
  Receive Date: 20160729
  Receipt Date: 20160729
  Transmission Date: 20161109
  Serious: No
  Sender: FDA-Public Use
  Company Number: US-BIOMARINAP-US-2016-110565

PATIENT
  Sex: Male
  Weight: 36.28 kg

DRUGS (1)
  1. VIMIZIM [Suspect]
     Active Substance: ELOSULFASE ALFA
     Indication: MUCOPOLYSACCHARIDOSIS
     Dosage: 75 MG, QW
     Route: 042
     Dates: start: 20140723

REACTIONS (3)
  - Localised infection [Unknown]
  - Cellulitis [Unknown]
  - Tinea pedis [Unknown]
